FAERS Safety Report 7151567-4 (Version None)
Quarter: 2010Q4

REPORT INFORMATION
  Report Type: 
  Country: None (occurrence: None)
  Receive Date: 20101210
  Receipt Date: 20101202
  Transmission Date: 20110411
  Serious: Yes (Hospitalization)
  Sender: FDA-Public Use
  Company Number: US-MYLANLABS-2010S1022041

PATIENT
  Age: 46 Year
  Sex: Female

DRUGS (2)
  1. FENTANYL TRANSDERMAL SYSTEM [Suspect]
     Indication: BACK PAIN
     Dosage: CHANGED Q. 72 HOURS.
     Route: 062
     Dates: end: 20101201
  2. INSULIN INJECTION [Concomitant]
     Indication: DIABETES MELLITUS
     Route: 058

REACTIONS (4)
  - CONFUSIONAL STATE [None]
  - DRUG EFFECT INCREASED [None]
  - DRUG SCREEN NEGATIVE [None]
  - DYSPNOEA [None]
